FAERS Safety Report 7232616-1 (Version None)
Quarter: 2011Q1

REPORT INFORMATION
  Report Type: 
  Country: None (occurrence: None)
  Receive Date: 20110119
  Receipt Date: 20110111
  Transmission Date: 20110831
  Serious: Yes (Death, Hospitalization, Other)
  Sender: FDA-Public Use
  Company Number: PHHY2010US88875

PATIENT
  Sex: Male
  Weight: 86.621 kg

DRUGS (15)
  1. LOPRESSOR [Concomitant]
     Dosage: 25 MG, BID
  2. HYDROXYUREA [Concomitant]
     Dosage: 1000 MG, BID
  3. LACTULOSE [Concomitant]
     Dosage: 30 G, DAILY
  4. FOSRENOL [Concomitant]
     Dosage: 1000 MG, WITH DINNER
  5. LEVAQUIN [Concomitant]
     Dosage: 500 MG, EVERY OTHER DAY
  6. CIPRO [Concomitant]
  7. INSULIN [Concomitant]
  8. EXJADE [Suspect]
     Indication: MYELODYSPLASTIC SYNDROME
     Dosage: 2000 MG, QD
     Dates: start: 20100401, end: 20101101
  9. OMEPRAZOLE [Concomitant]
     Dosage: 20 MG, DAILY
  10. DIFLUCAN [Concomitant]
     Dosage: 200 MG, AFTER HEMODIALYSIS
  11. VANCOMYCIN [Concomitant]
     Dosage: 500 MG, EVERY HEMODIALYSIS
  12. FLUCONAZOLE [Concomitant]
  13. XIFAXAN [Concomitant]
     Dosage: 400 MG, UNK
  14. ACYCLOVIR [Concomitant]
     Dosage: 400 MG, BID
  15. TRANSFUSIONS [Concomitant]

REACTIONS (16)
  - RIGHT VENTRICULAR SYSTOLIC PRESSURE DECREASED [None]
  - DIALYSIS [None]
  - CARDIOVASCULAR DISORDER [None]
  - SEPSIS [None]
  - RENAL FAILURE CHRONIC [None]
  - HAEMOGLOBIN DECREASED [None]
  - PYREXIA [None]
  - EJECTION FRACTION ABNORMAL [None]
  - PERICARDIAL EFFUSION [None]
  - CARDIO-RESPIRATORY ARREST [None]
  - AORTIC DILATATION [None]
  - GASTROOESOPHAGEAL REFLUX DISEASE [None]
  - MITRAL VALVE INCOMPETENCE [None]
  - WEIGHT DECREASED [None]
  - LEFT VENTRICULAR HYPERTROPHY [None]
  - RENAL FAILURE ACUTE [None]
